FAERS Safety Report 9349879 (Version 3)
Quarter: 2014Q1

REPORT INFORMATION
  Report Type: Spontaneous
  Country: US (occurrence: US)
  Receive Date: 20130614
  Receipt Date: 20140212
  Transmission Date: 20141002
  Serious: Yes (Hospitalization, Other)
  Sender: FDA-Public Use
  Company Number: US-ALLERGAN-1308240US

PATIENT
  Age: 60 Year
  Sex: Female

DRUGS (17)
  1. RESTASIS [Suspect]
     Indication: DRY EYE
     Dosage: 2 GTT, BID
     Route: 047
  2. METHADONE [Concomitant]
     Indication: PSORIATIC ARTHROPATHY
     Dosage: 10 MG, QID
     Route: 048
  3. LASIX [Concomitant]
     Indication: OEDEMA PERIPHERAL
     Dosage: 40-80MG, QD
     Route: 048
  4. GABAPENTIN [Concomitant]
     Indication: PSORIATIC ARTHROPATHY
     Dosage: 300 MG, BID
     Route: 048
  5. GABAPENTIN [Concomitant]
     Indication: SPONDYLOLISTHESIS
  6. OMEPRAZOLE [Concomitant]
     Indication: GASTROOESOPHAGEAL REFLUX DISEASE
     Dosage: 20 MG, BID
     Route: 048
  7. TRIMETHOPRIM [Concomitant]
     Indication: CYSTITIS INTERSTITIAL
     Dosage: 100 MG, QD
     Route: 048
  8. CLONAZEPAM [Concomitant]
     Indication: PRODUCT USED FOR UNKNOWN INDICATION
     Dosage: 1 MG, QID
     Route: 048
  9. LEVOTHYROXINE [Concomitant]
     Indication: AUTOIMMUNE THYROIDITIS
     Dosage: 1.137 MG, QD
     Route: 048
  10. POTASSIUM [Concomitant]
     Indication: MINERAL SUPPLEMENTATION
     Dosage: 10 MEQ, TWO TABS, QD
     Route: 048
  11. COLACE [Concomitant]
     Indication: CONSTIPATION
     Dosage: 100 MG, BID
     Route: 048
  12. PLAQUENIL [Concomitant]
     Indication: PSORIATIC ARTHROPATHY
     Dosage: 200 MG, BID
     Route: 048
  13. CALCIUM CITRATE [Concomitant]
     Indication: SUPPLEMENTATION THERAPY
     Dosage: 350 MG, TID
     Route: 048
  14. FERRICON [Concomitant]
     Indication: GASTRIC BYPASS
     Dosage: UNK
  15. MVI [Concomitant]
     Indication: SUPPLEMENTATION THERAPY
     Dosage: UNK
  16. HEPARIN [Concomitant]
     Indication: CYSTITIS INTERSTITIAL
     Dosage: ONCE OR TWICE WEEKLY
     Route: 043
  17. LIDOCAINE [Concomitant]
     Indication: CYSTITIS INTERSTITIAL
     Dosage: ONCE OR TWICE WEEKLY
     Route: 043

REACTIONS (7)
  - Pneumonia [Unknown]
  - White blood cell count decreased [Unknown]
  - Malabsorption [Unknown]
  - Eye irritation [Recovered/Resolved]
  - Vision blurred [Recovered/Resolved]
  - Eye pain [Recovering/Resolving]
  - Eye pain [Recovering/Resolving]
